FAERS Safety Report 7354459-0 (Version None)
Quarter: 2011Q1

REPORT INFORMATION
  Report Type: 
  Country: None (occurrence: None)
  Receive Date: 20110316
  Receipt Date: 20110304
  Transmission Date: 20110831
  Serious: Yes (Hospitalization)
  Sender: FDA-Public Use
  Company Number: US-BAYER-2011-000932

PATIENT
  Sex: Female

DRUGS (4)
  1. INTERFERON BETA-1B [Suspect]
     Dosage: 6 MIU, QOD
     Route: 058
  2. INTERFERON BETA-1B [Suspect]
     Dosage: 8 MIU, QOD
     Route: 058
  3. INTERFERON BETA-1B [Suspect]
     Indication: RELAPSING-REMITTING MULTIPLE SCLEROSIS
     Dosage: UNK
     Route: 058
     Dates: start: 20051230, end: 20101130
  4. INTERFERON BETA-1B [Suspect]
     Dosage: 2 MIU, QOD
     Route: 058
     Dates: start: 20110114

REACTIONS (2)
  - INJECTION SITE ABSCESS [None]
  - MYALGIA [None]
